FAERS Safety Report 16209806 (Version 1)
Quarter: 2019Q2

REPORT INFORMATION
  Report Type: Report from Study
  Country: GB (occurrence: GB)
  Receive Date: 20190417
  Receipt Date: 20190417
  Transmission Date: 20190711
  Serious: Yes (Other)
  Sender: FDA-Public Use
  Company Number: PHHY2019GB066813

PATIENT
  Sex: Female

DRUGS (2)
  1. COSENTYX [Suspect]
     Active Substance: SECUKINUMAB
     Indication: PSORIATIC ARTHROPATHY
     Dosage: 150 MG, QW  (PRE-FILLED PEN)
     Route: 058
     Dates: start: 20190313
  2. COSENTYX [Suspect]
     Active Substance: SECUKINUMAB
     Dosage: 150 MG, QW (PRE-FILLED PEN)
     Route: 058
     Dates: start: 20180410

REACTIONS (4)
  - Viral infection [Unknown]
  - Rhinorrhoea [Unknown]
  - Malaise [Unknown]
  - Nasopharyngitis [Unknown]
